FAERS Safety Report 10101859 (Version 3)
Quarter: 2014Q2

REPORT INFORMATION
  Report Type: Spontaneous
  Country: US (occurrence: US)
  Receive Date: 20140424
  Receipt Date: 20140425
  Transmission Date: 20141212
  Serious: Yes (Other)
  Sender: FDA-Public Use
  Company Number: US-BAXTER-2014BAX017294

PATIENT
  Age: 55 Year
  Sex: Male
  Weight: 94.45 kg

DRUGS (4)
  1. DIANEAL PD2 [Suspect]
     Indication: RENAL FAILURE CHRONIC
     Route: 033
     Dates: start: 20140107
  2. DIANEAL PD2 [Suspect]
     Dosage: LAST FILL
     Route: 033
     Dates: start: 20140107
  3. DIANEAL PD2 (ULTRABAG) [Suspect]
     Indication: RENAL FAILURE CHRONIC
     Route: 033
     Dates: start: 20140107
  4. DIANEAL PD2 (ULTRABAG) [Suspect]
     Dosage: LAST FILL
     Route: 033
     Dates: start: 20140107

REACTIONS (4)
  - Pneumoperitoneum [Recovered/Resolved]
  - Procedural pain [Recovered/Resolved]
  - Dyspnoea [Recovering/Resolving]
  - Hypopnoea [Recovered/Resolved]
